FAERS Safety Report 7792045-9 (Version None)
Quarter: 2011Q4

REPORT INFORMATION
  Report Type: 
  Country: None (occurrence: None)
  Receive Date: 20111003
  Receipt Date: 20110920
  Transmission Date: 20120403
  Serious: Yes (Hospitalization)
  Sender: FDA-Public Use
  Company Number: US-BAYER-2011-055209

PATIENT
  Age: 29 Year
  Sex: Female
  Weight: 67 kg

DRUGS (6)
  1. YASMIN [Suspect]
     Indication: CONTRACEPTION
     Dosage: UNK
     Dates: start: 20060101, end: 20100101
  2. FLUTICASONE PROPIONATE [Concomitant]
     Dosage: UNK UNK, TID
     Route: 045
  3. OMEPRAZOLE [Concomitant]
     Dosage: UNK
     Route: 048
     Dates: start: 20091009
  4. FLUOXETINE [Concomitant]
     Dosage: 10 MG, QD
     Route: 048
  5. AZITHROMYCIN [Concomitant]
     Dosage: 250 MG, UNK
     Route: 048
  6. DROSPIRENONE AND ETHINYL ESTRADIOL [Suspect]
     Indication: CONTRACEPTION
     Dosage: UNK
     Dates: start: 20060101, end: 20100101

REACTIONS (4)
  - POST PROCEDURAL COMPLICATION [None]
  - CHOLECYSTITIS CHRONIC [None]
  - GALLBLADDER DISORDER [None]
  - PAIN [None]
